FAERS Safety Report 9970220 (Version 1)
Quarter: 2014Q1

REPORT INFORMATION
  Report Type: Spontaneous
  Country: FR (occurrence: None)
  Receive Date: 20140304
  Receipt Date: 20140304
  Transmission Date: 20141002
  Serious: Yes (Hospitalization)
  Sender: FDA-Public Use
  Company Number: SYM-2014-18108

PATIENT
  Age: 65 Year
  Sex: Female

DRUGS (1)
  1. TARGRETIN (BEXAROENE) (CAPSULE) (BEXAROTENE) [Suspect]
     Indication: MYCOSIS FUNGOIDES
     Route: 048
     Dates: start: 20110128, end: 20110223

REACTIONS (6)
  - Intertrigo [None]
  - Oedema peripheral [None]
  - Hyperkeratosis [None]
  - Condition aggravated [None]
  - Inflammation [None]
  - Pain [None]
